FAERS Safety Report 12693689 (Version 1)
Quarter: 2016Q3

REPORT INFORMATION
  Report Type: Spontaneous
  Country: JP (occurrence: JP)
  Receive Date: 20160829
  Receipt Date: 20160829
  Transmission Date: 20161109
  Serious: Yes (Other)
  Sender: FDA-Public Use
  Company Number: JP-009507513-1608JPN013741

PATIENT
  Sex: Female

DRUGS (1)
  1. FOSAMAC TABLETS 35MG [Suspect]
     Active Substance: ALENDRONATE SODIUM
     Dosage: 35 MG ONCE A WEEK
     Route: 048
     Dates: start: 2009

REACTIONS (4)
  - Hip fracture [Unknown]
  - Pain in extremity [Unknown]
  - Chest pain [Unknown]
  - Tenosynovitis [Unknown]

NARRATIVE: CASE EVENT DATE: 2016
